FAERS Safety Report 5988977-4 (Version None)
Quarter: 2008Q4

REPORT INFORMATION
  Report Type: 
  Country: None (occurrence: None)
  Receive Date: 20081210
  Receipt Date: 20081203
  Transmission Date: 20090506
  Serious: Yes (Congenital Anomaly)
  Sender: FDA-Public Use
  Company Number: A0662920A

PATIENT
  Sex: Male
  Weight: 1.9 kg

DRUGS (11)
  1. PAXIL [Suspect]
     Indication: ANXIETY
     Dosage: 20MG PER DAY
     Dates: start: 20040701, end: 20040901
  2. XANAX [Concomitant]
     Dates: start: 20030101, end: 20040701
  3. SOMA [Concomitant]
     Dates: start: 20020101, end: 20050101
  4. INSULIN [Concomitant]
     Indication: DIABETES MELLITUS
  5. ZOFRAN [Concomitant]
  6. REGLAN [Concomitant]
  7. PHENERGAN HCL [Concomitant]
  8. PROTONIX [Concomitant]
  9. ANTIBIOTICS [Concomitant]
  10. LORTAB [Concomitant]
     Dates: start: 20041101
  11. DURICEF [Concomitant]
     Dates: start: 20041101

REACTIONS (8)
  - BUNDLE BRANCH BLOCK RIGHT [None]
  - CARDIAC FAILURE [None]
  - DRUG EXPOSURE DURING PREGNANCY [None]
  - HEART VALVE INCOMPETENCE [None]
  - OBSTRUCTIVE AIRWAYS DISORDER [None]
  - PULMONARY VALVE STENOSIS [None]
  - RESPIRATORY FAILURE [None]
  - VENTRICULAR SEPTAL DEFECT [None]
